FAERS Safety Report 19888348 (Version 4)
Quarter: 2023Q2

REPORT INFORMATION
  Report Type: Report from Study
  Country: CA (occurrence: None)
  Receive Date: 20210928
  Receipt Date: 20230619
  Transmission Date: 20230721
  Serious: Yes (Other)
  Sender: FDA-Public Use
  Company Number: CA-ORION CORPORATION ORION PHARMA-TREX2019-4990

PATIENT
  Age: 12 Year
  Sex: Female

DRUGS (29)
  1. METHOTREXATE [Suspect]
     Active Substance: METHOTREXATE
     Indication: Product used for unknown indication
  2. METHOTREXATE [Suspect]
     Active Substance: METHOTREXATE
  3. METHOTREXATE [Suspect]
     Active Substance: METHOTREXATE
  4. CYCLOSPORINE [Suspect]
     Active Substance: CYCLOSPORINE
     Indication: Product used for unknown indication
  5. ILARIS [Suspect]
     Active Substance: CANAKINUMAB
     Indication: Still^s disease
  6. ILARIS [Suspect]
     Active Substance: CANAKINUMAB
  7. ILARIS [Suspect]
     Active Substance: CANAKINUMAB
  8. ILARIS [Suspect]
     Active Substance: CANAKINUMAB
  9. ILARIS [Suspect]
     Active Substance: CANAKINUMAB
  10. ILARIS [Suspect]
     Active Substance: CANAKINUMAB
  11. ILARIS [Suspect]
     Active Substance: CANAKINUMAB
  12. ILARIS [Suspect]
     Active Substance: CANAKINUMAB
  13. ILARIS [Suspect]
     Active Substance: CANAKINUMAB
  14. ILARIS [Suspect]
     Active Substance: CANAKINUMAB
  15. ILARIS [Suspect]
     Active Substance: CANAKINUMAB
  16. ILARIS [Suspect]
     Active Substance: CANAKINUMAB
  17. ILARIS [Suspect]
     Active Substance: CANAKINUMAB
  18. ILARIS [Suspect]
     Active Substance: CANAKINUMAB
  19. ILARIS [Suspect]
     Active Substance: CANAKINUMAB
  20. ILARIS [Suspect]
     Active Substance: CANAKINUMAB
  21. ILARIS [Suspect]
     Active Substance: CANAKINUMAB
  22. INDOMETHACIN [Concomitant]
     Active Substance: INDOMETHACIN
  23. PREDNISONE [Concomitant]
     Active Substance: PREDNISONE
  24. PREDNISONE [Concomitant]
     Active Substance: PREDNISONE
  25. CYCLOSPORINE [Concomitant]
     Active Substance: CYCLOSPORINE
  26. CYCLOSPORINE [Concomitant]
     Active Substance: CYCLOSPORINE
  27. ACTEMRA [Concomitant]
     Active Substance: TOCILIZUMAB
  28. ACTEMRA [Concomitant]
     Active Substance: TOCILIZUMAB
  29. ANAKINRA [Concomitant]
     Active Substance: ANAKINRA

REACTIONS (14)
  - Therapeutic product effect decreased [Recovered/Resolved]
  - Drug ineffective [Recovering/Resolving]
  - Arthropod bite [Recovered/Resolved]
  - Condition aggravated [Recovered/Resolved]
  - Erythema [Recovered/Resolved]
  - Hepatic enzyme increased [Recovered/Resolved]
  - Pruritus [Recovered/Resolved]
  - Scratch [Recovered/Resolved]
  - Skin lesion [Recovered/Resolved]
  - Still^s disease [Recovered/Resolved]
  - Fatigue [Recovered/Resolved]
  - Urticaria [Recovered/Resolved]
  - Rash [Recovering/Resolving]
  - Stress [Recovering/Resolving]
